FAERS Safety Report 4515090-5 (Version None)
Quarter: 2004Q4

REPORT INFORMATION
  Report Type: 
  Country: None (occurrence: None)
  Receive Date: 20041126
  Receipt Date: 20041116
  Transmission Date: 20050328
  Serious: Yes (Hospitalization, Other)
  Sender: FDA-Public Use
  Company Number: 2004093904

PATIENT
  Age: 52 Year
  Sex: Male
  Weight: 85 kg

DRUGS (1)
  1. SORTIS (ATORVASTATIN) [Suspect]
     Indication: HYPERLIPIDAEMIA
     Dosage: 20 MG (20 MG, 1 IN 1 D), ORAL
     Route: 048
     Dates: start: 20021101

REACTIONS (4)
  - ALBUMIN URINE PRESENT [None]
  - BLOOD CREATINE PHOSPHOKINASE INCREASED [None]
  - BRAIN STEM INFARCTION [None]
  - HAEMOGLOBIN URINE PRESENT [None]
